FAERS Safety Report 7807942-5 (Version None)
Quarter: 2011Q4

REPORT INFORMATION
  Report Type: 
  Country: None (occurrence: None)
  Receive Date: 20111011
  Receipt Date: 20111011
  Transmission Date: 20120403
  Serious: Yes (Life-Threatening)
  Sender: FDA-Public Use
  Company Number: None

PATIENT
  Age: 60 Year
  Sex: Female
  Weight: 69.853 kg

DRUGS (2)
  1. TECHNETIUM TC-99M SESTAMIBI KIT [Concomitant]
  2. SESTAMIBI [Suspect]
     Indication: CARDIAC STRESS TEST
     Dates: start: 20111006, end: 20111006

REACTIONS (15)
  - DYSPHAGIA [None]
  - INFLAMMATION [None]
  - SENSATION OF FOREIGN BODY [None]
  - MUSCLE TIGHTNESS [None]
  - SYNOVIAL CYST [None]
  - COUGH [None]
  - CHEST DISCOMFORT [None]
  - OROPHARYNGEAL PAIN [None]
  - DIZZINESS [None]
  - TRACHEAL PAIN [None]
  - DYSPHONIA [None]
  - HEADACHE [None]
  - UPPER-AIRWAY COUGH SYNDROME [None]
  - BALANCE DISORDER [None]
  - THROAT TIGHTNESS [None]
